FAERS Safety Report 15775379 (Version 1)
Quarter: 2018Q4

REPORT INFORMATION
  Report Type: Spontaneous
  Country: US (occurrence: US)
  Receive Date: 20181231
  Receipt Date: 20181231
  Transmission Date: 20190205
  Serious: No
  Sender: FDA-Public Use
  Company Number: US-JNJFOC-20181216466

PATIENT
  Age: 60 Year
  Sex: Female
  Weight: 79.38 kg

DRUGS (4)
  1. BABY ASPIRIN [Concomitant]
     Active Substance: ASPIRIN
     Route: 048
  2. PREDNISONE. [Concomitant]
     Active Substance: PREDNISONE
     Route: 048
  3. HYDROCHLOROTHIAZIDE. [Concomitant]
     Active Substance: HYDROCHLOROTHIAZIDE
     Route: 048
  4. REMICADE [Suspect]
     Active Substance: INFLIXIMAB
     Indication: POLYMYALGIA RHEUMATICA
     Dosage: 260 (UNSPECIFIED UNITS)
     Route: 042
     Dates: start: 20181101

REACTIONS (7)
  - Headache [Recovered/Resolved]
  - Product dose omission [Unknown]
  - Off label use [Unknown]
  - Anal fissure [Recovered/Resolved]
  - Vomiting [Recovered/Resolved]
  - Abdominal discomfort [Recovered/Resolved]
  - Product use in unapproved indication [Unknown]

NARRATIVE: CASE EVENT DATE: 20181101
